FAERS Safety Report 5083153-4 (Version None)
Quarter: 2006Q3

REPORT INFORMATION
  Report Type: 
  Country: None (occurrence: None)
  Receive Date: 20060724
  Receipt Date: 20031121
  Transmission Date: 20061208
  Serious: Yes (Hospitalization)
  Sender: FDA-Public Use
  Company Number: DRON00206001408

PATIENT
  Age: 51 Year
  Sex: Male
  Weight: 58 kg

DRUGS (4)
  1. MARINOL [Suspect]
     Indication: MULTIPLE SCLEROSIS
     Dosage: 1 DOSAGE FORM BID ORAL DAILY DOSE: 5 TO 15 MG
     Route: 048
     Dates: start: 20020213, end: 20020514
  2. MARINOL [Suspect]
     Indication: MUSCLE SPASTICITY
     Dosage: 1 DOSAGE FORM BID ORAL DAILY DOSE: 5 TO 15 MG
     Route: 048
     Dates: start: 20020213, end: 20020514
  3. DANTROLENE SODIUM [Concomitant]
  4. GARLIC CAPSULES (GARLIC CAPSULES) [Concomitant]

REACTIONS (4)
  - ASTHENIA [None]
  - NEPHROLITHIASIS [None]
  - PNEUMONIA [None]
  - PYREXIA [None]
